FAERS Safety Report 8304325-9 (Version None)
Quarter: 2012Q2

REPORT INFORMATION
  Report Type: 
  Country: None (occurrence: None)
  Receive Date: 20120423
  Receipt Date: 20120423
  Transmission Date: 20120825
  Serious: Yes (Other)
  Sender: FDA-Public Use
  Company Number: None

PATIENT
  Age: 60 Year
  Sex: Female
  Weight: 932.58 kg

DRUGS (1)
  1. ABILIFY [Suspect]
     Indication: BIPOLAR DISORDER
     Dosage: 2 MGS
     Route: 048
     Dates: start: 20120408, end: 20120415

REACTIONS (4)
  - FEELING ABNORMAL [None]
  - INFLUENZA LIKE ILLNESS [None]
  - ALOPECIA [None]
  - WEIGHT INCREASED [None]
